FAERS Safety Report 5671879-0 (Version None)
Quarter: 2008Q1

REPORT INFORMATION
  Report Type: 
  Country: None (occurrence: None)
  Receive Date: 20080317
  Receipt Date: 20080317
  Transmission Date: 20080703
  Serious: Yes (Other)
  Sender: FDA-Public Use
  Company Number: None

PATIENT
  Age: 16 Year
  Sex: Male
  Weight: 113.3993 kg

DRUGS (1)
  1. OXCARBAZEPINE 600MG RKS? [Suspect]
     Indication: AFFECTIVE DISORDER
     Dates: start: 20071101, end: 20080131

REACTIONS (1)
  - CONJUNCTIVAL HAEMORRHAGE [None]
